FAERS Safety Report 11129826 (Version 1)
Quarter: 2015Q2

REPORT INFORMATION
  Report Type: Spontaneous
  Country: US (occurrence: US)
  Receive Date: 20150521
  Receipt Date: 20150521
  Transmission Date: 20150821
  Serious: No
  Sender: FDA-Public Use
  Company Number: US-MALLINCKRODT-QSC-2014-0287

PATIENT
  Sex: Female
  Weight: 67.57 kg

DRUGS (2)
  1. H.P. ACTHAR [Suspect]
     Active Substance: CORTICOTROPIN
     Dosage: 80 UNITS, BIW
     Route: 058
     Dates: start: 20140502
  2. H.P. ACTHAR [Suspect]
     Active Substance: CORTICOTROPIN
     Indication: NEPHROTIC SYNDROME
     Dosage: 40 UNITS, BIW
     Route: 058
     Dates: start: 20131122, end: 20140501

REACTIONS (8)
  - Loss of libido [Unknown]
  - Urticaria [Recovering/Resolving]
  - Fatigue [Not Recovered/Not Resolved]
  - Constipation [Unknown]
  - Proteinuria [Not Recovered/Not Resolved]
  - Flatulence [Unknown]
  - Increased appetite [Unknown]
  - Contusion [Not Recovered/Not Resolved]

NARRATIVE: CASE EVENT DATE: 2014
